FAERS Safety Report 4755606-7 (Version None)
Quarter: 2005Q3

REPORT INFORMATION
  Report Type: 
  Country: None (occurrence: None)
  Receive Date: 20050830
  Receipt Date: 20050527
  Transmission Date: 20060218
  Serious: No
  Sender: FDA-Public Use
  Company Number: US-BRISTOL-MYERS SQUIBB COMPANY-12985891

PATIENT
  Age: 46 Year
  Sex: Male
  Weight: 107 kg

DRUGS (4)
  1. ABILIFY [Suspect]
     Indication: BIPOLAR DISORDER
  2. ABILIFY [Suspect]
     Indication: OBSESSIVE-COMPULSIVE DISORDER
  3. LEXAPRO [Concomitant]
  4. TOPAMAX [Concomitant]

REACTIONS (2)
  - VISION BLURRED [None]
  - WEIGHT DECREASED [None]
